FAERS Safety Report 17078733 (Version 3)
Quarter: 2020Q2

REPORT INFORMATION
  Report Type: Spontaneous
  Country: US (occurrence: US)
  Receive Date: 20191127
  Receipt Date: 20200409
  Transmission Date: 20200713
  Serious: Yes (Other)
  Sender: FDA-Public Use
  Company Number: US-PFIZER INC-2019506692

PATIENT
  Age: 65 Year
  Sex: Female
  Weight: 80.73 kg

DRUGS (18)
  1. LIALDA [Concomitant]
     Active Substance: MESALAMINE
     Indication: COLITIS ULCERATIVE
     Dosage: 2.4G , 2X/DAY
  2. COREG [Concomitant]
     Active Substance: CARVEDILOL
     Dosage: 10 MG, 1X/DAY[ONE DAILY-TAKEN AT BEDTIME AFTER MIDNIGHT]
  3. VIT-D [Concomitant]
     Dosage: UNK
  4. ASPIRIN [ACETYLSALICYLIC ACID] [Concomitant]
     Active Substance: ASPIRIN
     Indication: ANTICOAGULANT THERAPY
     Dosage: 80 MG, DAILY
  5. NIASPAN ER [Concomitant]
     Active Substance: NIACIN
     Dosage: 1000 MG, DAILY
  6. GLUCOPHAGE [Concomitant]
     Active Substance: METFORMIN HYDROCHLORIDE
     Indication: TYPE 2 DIABETES MELLITUS
     Dosage: 500 MG, 1X/DAY[ONE DAILY TAKEN AT BEDTIME AFTER MIDNIGHT]
  7. XANAX [Concomitant]
     Active Substance: ALPRAZOLAM
     Indication: SLEEP DISORDER
     Dosage: 0.25 MG, AS NEEDED[IF NEEDED AT BEDTIME ]
  8. UNISOM SLEEPMELTS [Concomitant]
     Active Substance: DIPHENHYDRAMINE HYDROCHLORIDE
     Indication: SLEEP DISORDER
     Dosage: U
  9. CHANTIX [Suspect]
     Active Substance: VARENICLINE TARTRATE
     Dosage: UNK
     Dates: start: 201909
  10. LIPITOR [Concomitant]
     Active Substance: ATORVASTATIN CALCIUM
     Dosage: 20 MG, 1X/DAY[ONE DAILY TAKEN AT BEDTIME AFTER MIDNIGHT]
  11. NIASPAN ER [Concomitant]
     Active Substance: NIACIN
     Dosage: 500 MG, DAILY
  12. JANUVIA [Concomitant]
     Active Substance: SITAGLIPTIN PHOSPHATE
     Indication: TYPE 2 DIABETES MELLITUS
     Dosage: 100 MG, 1X/DAY[ONE DAILY TAKEN AT NOONTIME]
  13. XIIDRA [Concomitant]
     Active Substance: LIFITEGRAST
     Indication: DRY EYE
     Dosage: UNK UNK, 2X/DAY
  14. NITROQUICK [Concomitant]
     Active Substance: NITROGLYCERIN
     Dosage: 0.4 MG, UNK[NEVER NEEDED, JUST HAVE IT]
  15. DOTERRA ON GUARD [Concomitant]
     Indication: NEPHROLITHIASIS
     Dosage: UNK UNK, DAILY[3 DROPS DAILY ]
  16. CHANTIX [Suspect]
     Active Substance: VARENICLINE TARTRATE
     Indication: SMOKING CESSATION THERAPY
     Dosage: UNK
     Route: 048
  17. RESTASIS [Concomitant]
     Active Substance: CYCLOSPORINE
     Indication: DRY EYE
     Dosage: UNK UNK, 2X/DAY
  18. FLOMAX [MORNIFLUMATE] [Concomitant]
     Active Substance: MORNIFLUMATE
     Indication: NEPHROLITHIASIS
     Dosage: 0.4 MG, UNK[ONLY TAKE IT WHEN I HAVE A KIDNEY STONE TO PASS]

REACTIONS (1)
  - Idiopathic pulmonary fibrosis [Not Recovered/Not Resolved]

NARRATIVE: CASE EVENT DATE: 201905
